FAERS Safety Report 10583298 (Version 1)
Quarter: 2014Q4

REPORT INFORMATION
  Report Type: Spontaneous
  Country: US (occurrence: None)
  Receive Date: 20141112
  Receipt Date: 20141112
  Transmission Date: 20150529
  Serious: No
  Sender: FDA-Public Use
  Company Number: 14AE047

PATIENT
  Sex: Female

DRUGS (1)
  1. EQUATE SLEEP AID [Suspect]
     Active Substance: DOXYLAMINE SUCCINATE
     Indication: SLEEP DISORDER
     Dosage: 1 BY MOUTH/ONCE
     Route: 048
     Dates: start: 20141031

REACTIONS (3)
  - Nightmare [None]
  - Somnambulism [None]
  - Sleep talking [None]

NARRATIVE: CASE EVENT DATE: 20141031
